FAERS Safety Report 22206892 (Version 3)
Quarter: 2023Q2

REPORT INFORMATION
  Report Type: Spontaneous
  Country: BR (occurrence: BR)
  Receive Date: 20230413
  Receipt Date: 20230427
  Transmission Date: 20230722
  Serious: Yes (Other)
  Sender: FDA-Public Use
  Company Number: BR-002147023-NVSC2023BR050368

PATIENT
  Sex: Female
  Weight: 61.2 kg

DRUGS (2)
  1. ZOLPIDEM TARTRATE [Suspect]
     Active Substance: ZOLPIDEM TARTRATE
     Indication: Insomnia
     Dosage: UNK
     Route: 065
  2. ZOLPIDEM TARTRATE [Suspect]
     Active Substance: ZOLPIDEM TARTRATE
     Dosage: 1 DOSAGE FORM, QD (NIGHT)
     Route: 048

REACTIONS (7)
  - Delirium [Recovered/Resolved]
  - Agitation [Recovered/Resolved]
  - Insomnia [Recovered/Resolved]
  - Hallucination [Unknown]
  - Feeling abnormal [Unknown]
  - Rebound effect [Unknown]
  - Drug ineffective [Unknown]
